FAERS Safety Report 5699222-1 (Version None)
Quarter: 2008Q2

REPORT INFORMATION
  Report Type: 
  Country: None (occurrence: None)
  Receive Date: 20080408
  Receipt Date: 20080328
  Transmission Date: 20081010
  Serious: No
  Sender: FDA-Public Use
  Company Number: APP200800228

PATIENT
  Age: 72 Year
  Sex: Female

DRUGS (2)
  1. HEPARIN SODIUM INJECTION [Suspect]
     Indication: ANTICOAGULANT THERAPY
     Dosage: 70 MG/KG ONCE, INTRAVENOUS BOLUS
     Route: 040
     Dates: start: 20080325, end: 20080325
  2. HEPARIN SODIUM [Suspect]

REACTIONS (1)
  - BLOOD PRESSURE DECREASED [None]
